FAERS Safety Report 14150009 (Version 4)
Quarter: 2018Q1

REPORT INFORMATION
  Report Type: Report from Study
  Country: US (occurrence: US)
  Receive Date: 20171101
  Receipt Date: 20180226
  Transmission Date: 20180508
  Serious: No
  Sender: FDA-Public Use
  Company Number: US-THERATECHNOLOGIES, INC.-TH-2017-00330

PATIENT

DRUGS (18)
  1. DESCOVY [Concomitant]
     Active Substance: EMTRICITABINE\TENOFOVIR ALAFENAMIDE FUMARATE
     Dosage: UNK
  2. PREZISTA [Concomitant]
     Active Substance: DARUNAVIR ETHANOLATE
     Dosage: UNK
  3. CLONAZEPAM. [Concomitant]
     Active Substance: CLONAZEPAM
     Dosage: UNK
  4. OMEPRAZOLE. [Concomitant]
     Active Substance: OMEPRAZOLE
     Dosage: UNK
  5. NORVIR [Concomitant]
     Active Substance: RITONAVIR
     Dosage: UNK
  6. TRUVADA [Concomitant]
     Active Substance: EMTRICITABINE\TENOFOVIR DISOPROXIL FUMARATE
     Dosage: UNK
  7. QUETIAPINE FUMARATE. [Concomitant]
     Active Substance: QUETIAPINE FUMARATE
     Dosage: UNK
  8. EGRIFTA [Suspect]
     Active Substance: TESAMORELIN
     Dosage: 2 MG MILLIGRAM(S), DAILY DOSE
     Route: 058
     Dates: start: 20180206
  9. ISENTRESS [Concomitant]
     Active Substance: RALTEGRAVIR POTASSIUM
     Dosage: UNK
  10. TRAZODONE HYDROCHLORIDE. [Concomitant]
     Active Substance: TRAZODONE HYDROCHLORIDE
     Dosage: UNK
  11. LOPERAMIDE HCL [Concomitant]
     Active Substance: LOPERAMIDE HYDROCHLORIDE
     Dosage: UNK
  12. EGRIFTA [Suspect]
     Active Substance: TESAMORELIN
     Indication: LIPODYSTROPHY ACQUIRED
     Dosage: 2 MG MILLIGRAM(S), DAILY DOSE
     Route: 058
     Dates: start: 20170918, end: 201712
  13. TEMAZEPAM. [Concomitant]
     Active Substance: TEMAZEPAM
     Dosage: UNK
  14. INTELENCE [Concomitant]
     Active Substance: ETRAVIRINE
     Dosage: UNK
  15. ROPINIROLE HCL [Concomitant]
     Active Substance: ROPINIROLE HYDROCHLORIDE
     Dosage: UNK
  16. PANTOPRAZOLE SODIUM. [Concomitant]
     Active Substance: PANTOPRAZOLE SODIUM
     Dosage: UNK
  17. CRESTOR [Concomitant]
     Active Substance: ROSUVASTATIN CALCIUM
     Dosage: UNK
  18. SERTRALINE HCL [Concomitant]
     Active Substance: SERTRALINE HYDROCHLORIDE
     Dosage: UNK

REACTIONS (2)
  - Dyspnoea [Recovered/Resolved]
  - Injection site abscess [Recovered/Resolved]

NARRATIVE: CASE EVENT DATE: 201710
